FAERS Safety Report 9424875 (Version 2)
Quarter: 2013Q4

REPORT INFORMATION
  Report Type: Report from Study
  Country: JP (occurrence: JP)
  Receive Date: 20130729
  Receipt Date: 20131121
  Transmission Date: 20140711
  Serious: Yes (Hospitalization)
  Sender: FDA-Public Use
  Company Number: JP-AMGEN-JPNCT2013052801

PATIENT
  Age: 76 Year
  Sex: Male
  Weight: 70 kg

DRUGS (10)
  1. DARBEPOETIN ALFA [Suspect]
     Indication: NEPHROGENIC ANAEMIA
     Dosage: 120 MUG, Q3WK
     Route: 058
     Dates: start: 20110420, end: 20130205
  2. VOGLIBOSE [Concomitant]
     Dosage: UNK
     Route: 048
  3. SIGMART [Concomitant]
     Dosage: UNK
     Route: 048
  4. ARTIST [Concomitant]
     Dosage: UNK
     Route: 048
  5. ALLOPURINOL [Concomitant]
     Dosage: UNK
     Route: 048
  6. RENIVACE [Concomitant]
     Dosage: UNK
     Route: 048
  7. BAYASPIRIN [Concomitant]
     Dosage: UNK
     Route: 048
  8. PLAVIX [Concomitant]
     Dosage: UNK
     Route: 048
  9. LOCHOL [Concomitant]
     Dosage: UNK
     Route: 048
  10. BLOOD TRANSFUSION, AUXILIARY PRODUCTS [Concomitant]
     Dosage: UNK
     Dates: start: 20120507

REACTIONS (2)
  - Myelodysplastic syndrome [Not Recovered/Not Resolved]
  - Periodontitis [Recovering/Resolving]
